FAERS Safety Report 13113917 (Version 1)
Quarter: 2017Q1

REPORT INFORMATION
  Report Type: Report from Study
  Country: GB (occurrence: GB)
  Receive Date: 20170113
  Receipt Date: 20170113
  Transmission Date: 20170428
  Serious: Yes (Hospitalization)
  Sender: FDA-Public Use
  Company Number: GB-JNJFOC-20161200357

PATIENT
  Age: 32 Year
  Sex: Female
  Weight: 86.2 kg

DRUGS (3)
  1. STELARA [Suspect]
     Active Substance: USTEKINUMAB
     Indication: PSORIASIS
     Route: 058
     Dates: start: 20151105
  2. FENTANYL. [Concomitant]
     Active Substance: FENTANYL
     Route: 062
     Dates: start: 20060615
  3. AMITRIPTYLINE [Concomitant]
     Active Substance: AMITRIPTYLINE
     Route: 065
     Dates: start: 20120615

REACTIONS (5)
  - Arthritis [Recovered/Resolved with Sequelae]
  - Off label use [Unknown]
  - Cartilage injury [Recovered/Resolved with Sequelae]
  - Arthroscopy [Unknown]
  - Product use issue [Unknown]

NARRATIVE: CASE EVENT DATE: 20151105
